FAERS Safety Report 7402790-2 (Version None)
Quarter: 2011Q1

REPORT INFORMATION
  Report Type: 
  Country: None (occurrence: None)
  Receive Date: 20110301
  Receipt Date: 20100805
  Transmission Date: 20110831
  Serious: Yes (Other)
  Sender: FDA-Public Use
  Company Number: US-JNJFOC-20100504235

PATIENT
  Age: 52 Year
  Sex: Male
  Weight: 61.2356 kg

DRUGS (3)
  1. MOTRIN IB [Suspect]
     Indication: INFLAMMATION
     Dosage: ORAL
     Route: 048
     Dates: end: 20090101
  2. MOTRIN IB [Suspect]
     Indication: PAIN
     Dosage: ORAL
     Route: 048
     Dates: end: 20090101
  3. MOTRIN IB [Suspect]
     Indication: TENDONITIS
     Dosage: ORAL
     Route: 048
     Dates: end: 20090101

REACTIONS (2)
  - GASTROINTESTINAL HAEMORRHAGE [None]
  - INSOMNIA [None]
